FAERS Safety Report 11221130 (Version 1)
Quarter: 2015Q2

REPORT INFORMATION
  Report Type: Spontaneous
  Country: US (occurrence: US)
  Receive Date: 20150626
  Receipt Date: 20150626
  Transmission Date: 20150821
  Serious: No
  Sender: FDA-Public Use
  Company Number: US-BAYER-2015-365910

PATIENT
  Age: 93 Year
  Sex: Male
  Weight: 63.49 kg

DRUGS (5)
  1. AVODART [Concomitant]
     Active Substance: DUTASTERIDE
     Dosage: UNK
  2. VITAMIN B12 [Concomitant]
     Active Substance: CYANOCOBALAMIN
     Dosage: UNK
  3. TAMSULOSIN [Concomitant]
     Active Substance: TAMSULOSIN
     Dosage: UNK
  4. BAYER LOW DOSE [Concomitant]
     Active Substance: ASPIRIN
     Indication: ISCHAEMIC HEART DISEASE PROPHYLAXIS
     Dosage: UNK
  5. MIRALAX [Suspect]
     Active Substance: POLYETHYLENE GLYCOL 3350
     Indication: CONSTIPATION
     Dosage: 1 UNIT DOSE, PRN
     Route: 048
     Dates: start: 201501

REACTIONS (2)
  - Product use issue [None]
  - Drug ineffective [Unknown]

NARRATIVE: CASE EVENT DATE: 20150404
